FAERS Safety Report 7060634-5 (Version None)
Quarter: 2010Q4

REPORT INFORMATION
  Report Type: 
  Country: None (occurrence: None)
  Receive Date: 20101025
  Receipt Date: 20101018
  Transmission Date: 20110411
  Serious: Yes (Other)
  Sender: FDA-Public Use
  Company Number: US-BAXTER-2010BH024767

PATIENT

DRUGS (2)
  1. MORPHINE SULFATE [Suspect]
     Indication: PRODUCT USED FOR UNKNOWN INDICATION
     Route: 065
     Dates: start: 20100925, end: 20100925
  2. MORPHINE SULFATE [Suspect]
     Route: 065
     Dates: start: 20100925, end: 20100925

REACTIONS (2)
  - PRODUCT TAMPERING [None]
  - VENTRICULAR TACHYCARDIA [None]
